FAERS Safety Report 7542983-7 (Version None)
Quarter: 2011Q2

REPORT INFORMATION
  Report Type: 
  Country: None (occurrence: None)
  Receive Date: 20110613
  Receipt Date: 20110608
  Transmission Date: 20111010
  Serious: Yes (Hospitalization, Other)
  Sender: FDA-Public Use
  Company Number: DE-BRISTOL-MYERS SQUIBB COMPANY-15346265

PATIENT
  Age: 20 Year
  Sex: Female
  Weight: 65 kg

DRUGS (8)
  1. NEUROCIL [Suspect]
     Dosage: 9 TABS
     Dates: start: 20110608
  2. LITHIUM CARBONATE [Suspect]
     Dates: start: 20110608
  3. ALCOHOL [Suspect]
     Dates: start: 20110608
  4. VALPROATE SODIUM [Suspect]
     Dates: start: 20110608
  5. SEROQUEL [Suspect]
     Dosage: SEROQUEL 300
     Dates: start: 20110608
  6. LAMICTAL [Suspect]
     Dosage: 1DF=20-30 TABLETS.LAMICTAL 100
  7. ABILIFY [Suspect]
     Dosage: ABILIFY 15MG 10 TABLETS
     Route: 048
     Dates: start: 20110608
  8. FLUOXETINE HCL [Suspect]
     Dosage: 1DF=20-30 TABLETS.FLUOXETIN 40

REACTIONS (6)
  - HYPOTENSION [None]
  - SOMNOLENCE [None]
  - SUICIDE ATTEMPT [None]
  - CONVULSION [None]
  - SOPOR [None]
  - OVERDOSE [None]
